FAERS Safety Report 24334951 (Version 1)
Quarter: 2024Q3

REPORT INFORMATION
  Report Type: Spontaneous
  Country: US (occurrence: US)
  Receive Date: 20240918
  Receipt Date: 20240918
  Transmission Date: 20241016
  Serious: No
  Sender: BRISTOL MYERS SQUIBB
  Company Number: US-BRISTOL-MYERS SQUIBB COMPANY-2024-147575

PATIENT
  Age: 77 Year
  Sex: Male

DRUGS (3)
  1. POMALYST [Suspect]
     Active Substance: POMALIDOMIDE
     Indication: Kaposi^s sarcoma
     Dosage: STRENGTH:1MG
     Route: 048
  2. POMALYST [Suspect]
     Active Substance: POMALIDOMIDE
     Dosage: FREQUENCY:21
  3. POMALYST [Suspect]
     Active Substance: POMALIDOMIDE
     Dosage: FREQUENCY:21

REACTIONS (3)
  - Pruritus [Unknown]
  - Rash [Unknown]
  - Hypersensitivity [Unknown]
